FAERS Safety Report 4363320-5 (Version None)
Quarter: 2004Q2

REPORT INFORMATION
  Report Type: 
  Country: None (occurrence: None)
  Receive Date: 20040518
  Receipt Date: 20040505
  Transmission Date: 20050107
  Serious: Yes (Hospitalization)
  Sender: FDA-Public Use
  Company Number: 200410100BSV

PATIENT
  Age: 81 Year
  Sex: Female

DRUGS (14)
  1. CIPROFLOXACIN [Suspect]
     Indication: OSTEOMYELITIS
     Dosage: 1.5 G, TOTAL DAILY, ORAL
     Route: 048
     Dates: start: 20040214, end: 20040301
  2. LEVOXINE (LEVOTHYROXINE SODIUM) [Suspect]
     Indication: METASTASIS
     Dosage: 125 MICROGRAM, TOTAL DAILY,  ORAL; FEW YEARS
     Route: 048
  3. LEVOXINE (LEVOTHYROXINE SODIUM) [Suspect]
     Indication: THYROID GLAND CANCER
     Dosage: 125 MICROGRAM, TOTAL DAILY,  ORAL; FEW YEARS
     Route: 048
  4. DOLCONTIN [Concomitant]
  5. ZOFRAN [Concomitant]
  6. FUROSEMIDE [Concomitant]
  7. INDERAL [Concomitant]
  8. HIPREX [Concomitant]
  9. KCL TAB [Concomitant]
  10. ALPHA  ^LEO^ [Concomitant]
  11. KLEXANE [Concomitant]
  12. DICLOCIL [Concomitant]
  13. RANITIDINE [Concomitant]
  14. ACETAMINOPHEN [Concomitant]

REACTIONS (4)
  - CONDITION AGGRAVATED [None]
  - DRUG INTERACTION [None]
  - HYPOTHYROIDISM [None]
  - THYROID CANCER METASTATIC [None]
